FAERS Safety Report 5332697-6 (Version None)
Quarter: 2007Q2

REPORT INFORMATION
  Report Type: 
  Country: None (occurrence: None)
  Receive Date: 20070523
  Receipt Date: 20070514
  Transmission Date: 20071010
  Serious: Yes (Life-Threatening, Hospitalization, Other)
  Sender: FDA-Public Use
  Company Number: JP-PFIZER INC-2007034279

PATIENT
  Sex: Female

DRUGS (4)
  1. CABASER [Suspect]
     Indication: PARKINSON'S DISEASE
     Dosage: DAILY DOSE:2MG
     Route: 048
     Dates: start: 20040519, end: 20070417
  2. NEODOPASOL [Concomitant]
     Route: 048
  3. SELEGILINE HCL [Concomitant]
     Route: 048
  4. EXCEGRAN [Concomitant]
     Route: 048

REACTIONS (2)
  - CARDIAC ASTHMA [None]
  - CARDIAC VALVE DISEASE [None]
